FAERS Safety Report 12118802 (Version 1)
Quarter: 2016Q1

REPORT INFORMATION
  Report Type: Spontaneous
  Country: US (occurrence: None)
  Receive Date: 20160225
  Receipt Date: 20160225
  Transmission Date: 20160526
  Serious: Yes (Other)
  Sender: FDA-Public Use
  Company Number: None

PATIENT
  Age: 36 Year
  Sex: Female
  Weight: 0 kg

DRUGS (1)
  1. HUMIRA [Suspect]
     Active Substance: ADALIMUMAB
     Indication: PSORIASIS
     Dosage: SUBCUTANEOUS 057 40 MG INJECTABLE EVERY 2 WKS
     Route: 058
     Dates: start: 20160208

REACTIONS (1)
  - Skin infection [None]

NARRATIVE: CASE EVENT DATE: 20160224
